FAERS Safety Report 4293314-X (Version None)
Quarter: 2004Q1

REPORT INFORMATION
  Report Type: 
  Country: None (occurrence: None)
  Receive Date: 20040210
  Receipt Date: 20040129
  Transmission Date: 20041129
  Serious: Yes (Death, Hospitalization)
  Sender: FDA-Public Use
  Company Number: 163-20785-03100437

PATIENT
  Age: 65 Year
  Sex: Female

DRUGS (1)
  1. THALOMID [Suspect]
     Indication: MULTIPLE MYELOMA
     Dosage: 200 MG, DAILY, ORAL
     Route: 048
     Dates: start: 20030819, end: 20030101

REACTIONS (5)
  - BLOOD PRESSURE ABNORMAL [None]
  - PAIN [None]
  - PATHOLOGICAL FRACTURE [None]
  - THYROID DISORDER [None]
  - UPPER LIMB FRACTURE [None]
